FAERS Safety Report 9527511 (Version 3)
Quarter: 2013Q4

REPORT INFORMATION
  Report Type: Spontaneous
  Country: US (occurrence: None)
  Receive Date: 20130913
  Receipt Date: 20131011
  Transmission Date: 20140711
  Serious: Yes (Death)
  Sender: FDA-Public Use
  Company Number: ACO_38454_2013

PATIENT
  Age: 53 Year
  Sex: Female

DRUGS (10)
  1. AMPYRA [Suspect]
     Indication: MULTIPLE SCLEROSIS
     Route: 048
     Dates: start: 20130206, end: 20130413
  2. NOVANTRONE [Suspect]
     Indication: PRODUCT USED FOR UNKNOWN INDICATION
  3. REBIF (INTERFERON BETA-1A) [Concomitant]
  4. B12 (CYANOCOBALAMI) [Concomitant]
  5. XANAX (ALPRAZOLAM) [Concomitant]
  6. PREDNISONE (PREDNISONE) [Concomitant]
  7. MOTRIN (IBUPROFEN) [Concomitant]
  8. PROTONIX (PANTOPRAZOLE SODIUM SESQUIHYDRATE) [Concomitant]
  9. CELEBREX (CELECOXIB) [Concomitant]
  10. CITALOPRAM (CITALOPRAM HYDROBROMIDE) [Concomitant]

REACTIONS (2)
  - Death [None]
  - Cardiogenic shock [None]
